FAERS Safety Report 15947244 (Version 1)
Quarter: 2019Q1

REPORT INFORMATION
  Report Type: Spontaneous
  Country: US (occurrence: US)
  Receive Date: 20190212
  Receipt Date: 20190212
  Transmission Date: 20190417
  Serious: Yes (Hospitalization, Other)
  Sender: FDA-Public Use
  Company Number: US-LUPIN PHARMACEUTICALS INC.-2019-00578

PATIENT
  Age: 71 Year
  Sex: Female

DRUGS (3)
  1. CEFTRIAXONE FOR INJECTION USP, 1 G [Suspect]
     Active Substance: CEFTRIAXONE
     Dosage: 1 GM, UNK (SECOND DOSE)
     Route: 065
  2. CEFTRIAXONE FOR INJECTION USP, 1 G [Suspect]
     Active Substance: CEFTRIAXONE
     Indication: BLOOD URINE PRESENT
     Dosage: 1 GM, UNK (FIRST DOSE)
     Route: 065
     Dates: start: 20180806
  3. CEFTRIAXONE FOR INJECTION USP, 1 G [Suspect]
     Active Substance: CEFTRIAXONE
     Dosage: 1 GM, UNK (THIRD DOSE)
     Route: 065

REACTIONS (2)
  - Loss of consciousness [Recovered/Resolved]
  - Injection site pain [Unknown]

NARRATIVE: CASE EVENT DATE: 20180806
